FAERS Safety Report 20171363 (Version 2)
Quarter: 2021Q4

REPORT INFORMATION
  Report Type: Report from Study
  Country: IL (occurrence: IL)
  Receive Date: 20211210
  Receipt Date: 20211228
  Transmission Date: 20220303
  Serious: Yes (Life-Threatening, Hospitalization, Other)
  Sender: FDA-Public Use
  Company Number: IL-MLMSERVICE-20211126-3243372-1

PATIENT
  Age: 27 Year
  Sex: Female

DRUGS (4)
  1. SERTRALINE HYDROCHLORIDE [Suspect]
     Active Substance: SERTRALINE HYDROCHLORIDE
     Indication: Generalised anxiety disorder
     Dosage: 200 MG, 1X/DAY
  2. SERTRALINE HYDROCHLORIDE [Suspect]
     Active Substance: SERTRALINE HYDROCHLORIDE
     Dosage: 100 MG, 1X/DAY
  3. FLUTICASONE FUROATE\VILANTEROL TRIFENATATE [Concomitant]
     Active Substance: FLUTICASONE FUROATE\VILANTEROL TRIFENATATE
     Indication: Asthma
     Dosage: UNK
     Route: 055
  4. DESOGESTREL [Concomitant]
     Active Substance: DESOGESTREL
     Indication: Oral contraception
     Dosage: UNK

REACTIONS (6)
  - Respiratory failure [Recovered/Resolved]
  - Pneumomediastinum [Recovered/Resolved]
  - Interstitial lung disease [Recovered/Resolved]
  - Interstitial lung disease [Recovered/Resolved]
  - Interstitial lung disease [Recovered/Resolved]
  - Pneumothorax [Recovered/Resolved]
